FAERS Safety Report 7442607-3 (Version None)
Quarter: 2011Q2

REPORT INFORMATION
  Report Type: 
  Country: None (occurrence: None)
  Receive Date: 20110428
  Receipt Date: 20110421
  Transmission Date: 20111010
  Serious: Yes (Death)
  Sender: FDA-Public Use
  Company Number: PHHY2011GB32610

PATIENT
  Age: 55 Year
  Sex: Male

DRUGS (11)
  1. MESNA [Suspect]
     Indication: BURKITT'S LYMPHOMA
     Dosage: UNK UKN, UNK
  2. EFAVIRENZ [Concomitant]
     Dosage: UNK UKN, UNK
  3. IFOSFAMIDE [Suspect]
     Indication: BURKITT'S LYMPHOMA
     Dosage: UNK UKN, UNK
  4. ETOPOSIDE [Suspect]
     Indication: BURKITT'S LYMPHOMA
     Dosage: UNK UKN, UNK
  5. DOXORUBICIN [Suspect]
     Indication: BURKITT'S LYMPHOMA
     Dosage: UNK UKN, UNK
  6. METHOTREXATE [Suspect]
     Indication: BURKITT'S LYMPHOMA
     Dosage: UNK UKN, UNK
  7. CYTARABINE [Suspect]
     Indication: BURKITT'S LYMPHOMA
  8. VINCRISTINE [Suspect]
     Indication: BURKITT'S LYMPHOMA
     Dosage: UNK UKN, UNK
  9. TENOFOVIR DISOPROXIL FUMARATE [Concomitant]
     Dosage: UNK UKN, UNK
  10. CYCLOPHOSPHAMIDE [Suspect]
     Indication: BURKITT'S LYMPHOMA
     Dosage: UNK UKN, UNK
  11. EMTRICITABINE [Concomitant]
     Dosage: UNK UG/ML, UNK

REACTIONS (1)
  - TOXICITY TO VARIOUS AGENTS [None]
